FAERS Safety Report 21326398 (Version 7)
Quarter: 2023Q1

REPORT INFORMATION
  Report Type: Report from Study
  Country: JP (occurrence: JP)
  Receive Date: 20220913
  Receipt Date: 20230109
  Transmission Date: 20230417
  Serious: Yes (Hospitalization, Other)
  Sender: FDA-Public Use
  Company Number: JP-ONO-2022JP024972

PATIENT
  Age: 71 Year
  Sex: Male
  Weight: 56 kg

DRUGS (5)
  1. ETELCALCETIDE [Suspect]
     Active Substance: ETELCALCETIDE
     Indication: Hyperparathyroidism secondary
     Dosage: 5 MG, Q56H
     Route: 010
     Dates: start: 20190524, end: 20220616
  2. OXAROL [Concomitant]
     Active Substance: MAXACALCITOL
     Dosage: 5 MICROGRAM, Q56H
     Route: 065
     Dates: end: 20200524
  3. OXAROL [Concomitant]
     Active Substance: MAXACALCITOL
     Dosage: 2.5 MICROGRAM, Q56H
     Route: 065
     Dates: start: 20200525, end: 20211216
  4. OXAROL [Concomitant]
     Active Substance: MAXACALCITOL
     Dosage: 5 MICROGRAM, Q56H
     Route: 065
     Dates: start: 20211217
  5. ERYTHROPOIETIN [Concomitant]
     Active Substance: ERYTHROPOIETIN
     Dosage: 4500 IU, QW
     Route: 065

REACTIONS (7)
  - Synovitis [Recovered/Resolved]
  - Neoplasm skin [Recovering/Resolving]
  - Sinus node dysfunction [Recovered/Resolved]
  - Shunt stenosis [Recovered/Resolved]
  - Hiatus hernia [Recovering/Resolving]
  - Gastrooesophageal reflux disease [Recovering/Resolving]
  - Tenosynovitis [Recovering/Resolving]

NARRATIVE: CASE EVENT DATE: 20200114
